FAERS Safety Report 6537160-2 (Version None)
Quarter: 2010Q1

REPORT INFORMATION
  Report Type: 
  Country: None (occurrence: None)
  Receive Date: 20100110
  Receipt Date: 20100104
  Transmission Date: 20100710
  Serious: No
  Sender: FDA-Public Use
  Company Number: 20096811

PATIENT
  Sex: Female

DRUGS (6)
  1. LIORESAL [Suspect]
     Indication: MUSCLE SPASTICITY
     Dosage: 555.7 MCG, DAILY, INTRATHECAL
     Route: 037
  2. PREVACID [Concomitant]
  3. REGLAN [Concomitant]
  4. BENXTROPINE [Concomitant]
  5. VITAMIN D [Concomitant]
  6. MIRALAX [Concomitant]

REACTIONS (18)
  - ALOPECIA [None]
  - APHASIA [None]
  - BLISTER [None]
  - CONSTIPATION [None]
  - DECUBITUS ULCER [None]
  - DRY MOUTH [None]
  - FUNGAL SKIN INFECTION [None]
  - GASTROOESOPHAGEAL REFLUX DISEASE [None]
  - IMPAIRED HEALING [None]
  - INCISION SITE INFECTION [None]
  - OEDEMA PERIPHERAL [None]
  - SALIVARY HYPERSECRETION [None]
  - SKIN ULCER [None]
  - SLEEP DISORDER [None]
  - STREPTOCOCCAL INFECTION [None]
  - SUNBURN [None]
  - URINARY RETENTION [None]
  - WEIGHT BEARING DIFFICULTY [None]
